FAERS Safety Report 8777499 (Version 1)
Quarter: 2012Q4

REPORT INFORMATION
  Report Type: 
  Country: US (occurrence: US)
  Receive Date: 20120910
  Receipt Date: 20120910
  Transmission Date: 20130627
  Serious: Yes (Death)
  Sender: FDA-Public Use
  Company Number: US-CELGENEUS-163-21880-12062409

PATIENT
  Sex: Male

DRUGS (13)
  1. REVLIMID [Suspect]
     Indication: HEPATIC NEOPLASM MALIGNANT
     Dosage: 25 Milligram
     Route: 048
     Dates: start: 20120531, end: 20120612
  2. LASIX [Concomitant]
     Indication: DRUG USE FOR UNKNOWN INDICATION
     Dosage: 80 Milligram
     Route: 048
  3. SPIRONOLACTONE [Concomitant]
     Indication: DRUG USE FOR UNKNOWN INDICATION
     Dosage: 200 Milligram
     Route: 048
  4. LIDOCAINE [Concomitant]
     Indication: DRUG USE FOR UNKNOWN INDICATION
     Route: 061
  5. OXYCODONE [Concomitant]
     Indication: PAIN
     Dosage: 15 Milligram
     Route: 048
  6. LORAZEPAM [Concomitant]
     Indication: DRUG USE FOR UNKNOWN INDICATION
     Dosage: 1 Milligram
     Route: 048
  7. PROCHLORPERAZINE [Concomitant]
     Indication: NAUSEA
     Route: 048
  8. PROCHLORPERAZINE [Concomitant]
     Indication: VOMITING
  9. CLOTRIMAZOLE [Concomitant]
     Indication: THRUSH
     Dosage: 50 Milligram
     Route: 048
  10. LOPERAMIDE [Concomitant]
     Indication: DIARRHEA
     Dosage: 2mg, 2 caps 1st episode of diarrhea then 1 cap every 2hrs
     Route: 048
  11. HEMORRHOID [Concomitant]
     Indication: DRUG USE FOR UNKNOWN INDICATION
     Dosage: 1 Percent
     Route: 065
  12. OXYCONTIN [Concomitant]
     Indication: DRUG USE FOR UNKNOWN INDICATION
     Dosage: 180 Milligram
     Route: 048
  13. DALTEPARIN [Concomitant]
     Indication: ATRIAL THROMBOSIS
     Route: 065

REACTIONS (1)
  - Hepatic cancer [Fatal]
